FAERS Safety Report 11273814 (Version 1)
Quarter: 2015Q3

REPORT INFORMATION
  Report Type: Spontaneous
  Country: US (occurrence: US)
  Receive Date: 20150715
  Receipt Date: 20150715
  Transmission Date: 20151125
  Serious: No
  Sender: FDA-Public Use
  Company Number: US-ENDO PHARMACEUTICALS INC.-2015-000583

PATIENT
  Age: 64 Year
  Sex: Male
  Weight: 85.35 kg

DRUGS (7)
  1. BUPROPION. [Concomitant]
     Active Substance: BUPROPION
     Indication: PRODUCT USED FOR UNKNOWN INDICATION
  2. LISINOPRIL AND HYDROCHLOROTHIAZIDE [Concomitant]
     Active Substance: HYDROCHLOROTHIAZIDE\LISINOPRIL
     Indication: PRODUCT USED FOR UNKNOWN INDICATION
  3. EDEX [Suspect]
     Active Substance: ALPROSTADIL
     Indication: ERECTILE DYSFUNCTION
     Route: 065
     Dates: start: 201504, end: 201504
  4. EDEX [Suspect]
     Active Substance: ALPROSTADIL
     Route: 065
     Dates: start: 20150417, end: 20150417
  5. SYNTHROID [Concomitant]
     Active Substance: LEVOTHYROXINE SODIUM
     Indication: PRODUCT USED FOR UNKNOWN INDICATION
  6. EDEX [Suspect]
     Active Substance: ALPROSTADIL
     Route: 065
     Dates: start: 20150419, end: 20150419
  7. DEXILANT [Concomitant]
     Active Substance: DEXLANSOPRAZOLE
     Indication: PRODUCT USED FOR UNKNOWN INDICATION

REACTIONS (2)
  - Drug effect decreased [Not Recovered/Not Resolved]
  - Prescribed underdose [Not Recovered/Not Resolved]

NARRATIVE: CASE EVENT DATE: 201504
